FAERS Safety Report 9387537 (Version 1)
Quarter: 2013Q3

REPORT INFORMATION
  Report Type: Spontaneous
  Country: FR (occurrence: FR)
  Receive Date: 20130708
  Receipt Date: 20130708
  Transmission Date: 20140515
  Serious: Yes (Hospitalization, Other)
  Sender: FDA-Public Use
  Company Number: FR-PFIZER INC-2013200066

PATIENT
  Age: 64 Year
  Sex: Female

DRUGS (2)
  1. ATENOLOL [Suspect]
     Indication: HYPERTENSION
     Dosage: 50 MG, 1X/DAY
     Route: 048
  2. ATENOLOL [Suspect]
     Dosage: 25 MG, 1X/DAY
     Route: 048

REACTIONS (5)
  - Hypoglycaemia [Recovered/Resolved]
  - Asthma [Recovered/Resolved]
  - Intentional drug misuse [Unknown]
  - Withdrawal hypertension [Unknown]
  - Epistaxis [Unknown]
